FAERS Safety Report 9786833 (Version 2)
Quarter: 2014Q1

REPORT INFORMATION
  Report Type: Spontaneous
  Country: RS (occurrence: RS)
  Receive Date: 20131227
  Receipt Date: 20140124
  Transmission Date: 20141002
  Serious: Yes (Other)
  Sender: FDA-Public Use
  Company Number: RS-ACTAVIS-2013-23319

PATIENT
  Sex: Female

DRUGS (5)
  1. SINOXAL [Suspect]
     Indication: ADENOCARCINOMA
     Dosage: 100 MG, CYCLICAL
     Route: 042
     Dates: start: 20131212, end: 20131212
  2. SINOXAL [Suspect]
     Indication: COLON CANCER
     Dosage: 50 MG, CYCLICAL
     Route: 042
     Dates: start: 20131212, end: 20131212
  3. DEXASONE                           /00016001/ [Concomitant]
     Indication: PREMEDICATION
     Dosage: 8 MG, UNKNOWN
     Route: 042
     Dates: start: 20131212, end: 20131212
  4. ONDASAN [Concomitant]
     Indication: PREMEDICATION
     Dosage: 8 MG, TOTAL
     Route: 042
     Dates: start: 20131212, end: 20131212
  5. LEMOD SOLU [Concomitant]
     Indication: PREMEDICATION
     Dosage: 125 MG, TOTAL
     Route: 042
     Dates: start: 20131212, end: 20131212

REACTIONS (4)
  - Jaundice [Recovered/Resolved]
  - Pyrexia [Recovered/Resolved]
  - Yellow skin [Recovered/Resolved]
  - Chills [Recovered/Resolved]
